FAERS Safety Report 6142474-4 (Version None)
Quarter: 2009Q2

REPORT INFORMATION
  Report Type: 
  Country: None (occurrence: None)
  Receive Date: 20090403
  Receipt Date: 20090324
  Transmission Date: 20091009
  Serious: Yes (Hospitalization, Other)
  Sender: FDA-Public Use
  Company Number: US-BAYER-200915408NA

PATIENT
  Age: 29 Year
  Sex: Female

DRUGS (2)
  1. BETASERON [Suspect]
     Indication: MULTIPLE SCLEROSIS
     Dosage: AS USED: 4 MIU
     Route: 058
     Dates: start: 20090228, end: 20090304
  2. BETASERON [Suspect]
     Route: 058
     Dates: start: 20090210

REACTIONS (9)
  - AUTOMATIC BLADDER [None]
  - CHILLS [None]
  - DEHYDRATION [None]
  - HOT FLUSH [None]
  - INFLUENZA LIKE ILLNESS [None]
  - PHARYNGITIS STREPTOCOCCAL [None]
  - PYREXIA [None]
  - RENAL FAILURE ACUTE [None]
  - URINARY INCONTINENCE [None]
